FAERS Safety Report 7782489-3 (Version None)
Quarter: 2011Q3

REPORT INFORMATION
  Report Type: 
  Country: None (occurrence: None)
  Receive Date: 20110928
  Receipt Date: 20110915
  Transmission Date: 20111222
  Serious: Yes (Hospitalization, Other)
  Sender: FDA-Public Use
  Company Number: US-RANBAXY-2011US-48383

PATIENT

DRUGS (8)
  1. VERAPAMIL [Interacting]
     Dosage: DOSE INCREASED TO 180 MG DAILY
  2. GABAPENTIN [Concomitant]
     Indication: PRODUCT USED FOR UNKNOWN INDICATION
     Dosage: UNK
     Route: 065
  3. VERAPAMIL [Suspect]
     Indication: HYPERTENSION
     Dosage: 120 MG, AT BEDTIME
     Route: 048
  4. DIHYDROERGOTAMINE MESYLATE [Interacting]
     Indication: PAIN
     Dosage: 1 MG, UNK
     Route: 042
  5. HYDROCODONE BITARTRATE + ACETAMINOPHEN [Concomitant]
     Indication: PRODUCT USED FOR UNKNOWN INDICATION
     Dosage: UNK
     Route: 065
  6. NICOTINE [Interacting]
     Indication: SMOKING CESSATION THERAPY
     Dosage: PATCH 7 MG, AT BEDTIME
     Route: 065
  7. LORAZEPAM [Concomitant]
     Indication: PRODUCT USED FOR UNKNOWN INDICATION
     Dosage: UNK
     Route: 065
  8. HALOPERIDOL [Concomitant]
     Indication: PRODUCT USED FOR UNKNOWN INDICATION
     Dosage: UNK
     Route: 065

REACTIONS (2)
  - PRINZMETAL ANGINA [None]
  - DRUG INTERACTION [None]
